FAERS Safety Report 7795755-2 (Version None)
Quarter: 2011Q4

REPORT INFORMATION
  Report Type: 
  Country: None (occurrence: None)
  Receive Date: 20111004
  Receipt Date: 20110928
  Transmission Date: 20120403
  Serious: Yes (Other)
  Sender: FDA-Public Use
  Company Number: US-AMGEN-USASP2011006231

PATIENT
  Age: 50 Year
  Sex: Female

DRUGS (2)
  1. ENBREL [Suspect]
     Indication: RHEUMATOID ARTHRITIS
     Dosage: 50 MG, QWK
     Dates: start: 20100210
  2. TREXALL [Concomitant]
     Dosage: UNK
     Dates: start: 20080101

REACTIONS (6)
  - YELLOW SKIN [None]
  - ARTHRALGIA [None]
  - JOINT SWELLING [None]
  - DERMATITIS CONTACT [None]
  - AMNESIA [None]
  - RASH PAPULAR [None]
